FAERS Safety Report 5761718-1 (Version None)
Quarter: 2008Q2

REPORT INFORMATION
  Report Type: 
  Country: None (occurrence: None)
  Receive Date: 20080602
  Receipt Date: 20080519
  Transmission Date: 20081010
  Serious: Yes (Death, Hospitalization)
  Sender: FDA-Public Use
  Company Number: 220001L08USA

PATIENT
  Age: 68 Year
  Sex: Male

DRUGS (5)
  1. SOMATROPIN (SOMATROPIN) [Suspect]
     Indication: OFF LABEL USE
     Dosage: 0.6 MG, 2 IN 1 DAYS, SUBCUTANEOUS
     Route: 058
  2. PREDNISONE TAB [Concomitant]
  3. MESALAMINE [Concomitant]
  4. TESTOSTERONE [Concomitant]
  5. PRASTERONE [Concomitant]

REACTIONS (4)
  - ABDOMINAL PAIN [None]
  - COLON CANCER METASTATIC [None]
  - HAEMATOCHEZIA [None]
  - OFF LABEL USE [None]
